FAERS Safety Report 9129664 (Version 2)
Quarter: 2013Q2

REPORT INFORMATION
  Report Type: Spontaneous
  Country: BR (occurrence: BR)
  Receive Date: 20130228
  Receipt Date: 20130416
  Transmission Date: 20140414
  Serious: Yes (Other)
  Sender: FDA-Public Use
  Company Number: BR-ASTRAZENECA-2013SE11746

PATIENT
  Age: 70 Year
  Sex: Female
  Weight: 80 kg

DRUGS (6)
  1. ATACAND [Suspect]
     Indication: HYPERTENSION
     Route: 048
  2. ATACAND HCT [Suspect]
     Indication: HYPERTENSION
     Dosage: 16/12.5 MG ONE DAILY
     Route: 048
  3. LIPITOR [Suspect]
     Indication: BLOOD CHOLESTEROL INCREASED
     Route: 048
     Dates: start: 201201, end: 201208
  4. LIPITOR [Suspect]
     Indication: BLOOD CHOLESTEROL INCREASED
     Route: 048
     Dates: start: 201301, end: 201303
  5. FLUOXETINE [Concomitant]
     Indication: DEPRESSION
     Route: 048
  6. OCADIL [Concomitant]
     Indication: ANXIETY
     Route: 048

REACTIONS (6)
  - Drug-induced liver injury [Recovered/Resolved]
  - Blood cholesterol increased [Not Recovered/Not Resolved]
  - Lumbar spinal stenosis [Not Recovered/Not Resolved]
  - Platelet count decreased [Not Recovered/Not Resolved]
  - Rash maculo-papular [Recovered/Resolved]
  - Myalgia [Recovered/Resolved]
